FAERS Safety Report 19371395 (Version 1)
Quarter: 2021Q2

REPORT INFORMATION
  Report Type: Spontaneous
  Country: US (occurrence: US)
  Receive Date: 20210603
  Receipt Date: 20210603
  Transmission Date: 20210717
  Serious: No
  Sender: FDA-Public Use
  Company Number: US-SA-2021SA181034

PATIENT
  Age: 23 Year
  Sex: Female

DRUGS (1)
  1. DUPIXENT [Suspect]
     Active Substance: DUPILUMAB
     Indication: PRODUCT USED FOR UNKNOWN INDICATION
     Dosage: 300 MG, QOW
     Route: 058
     Dates: start: 20210503

REACTIONS (6)
  - Skin exfoliation [Unknown]
  - Skin fissures [Unknown]
  - Pruritus [Unknown]
  - Skin haemorrhage [Unknown]
  - Sleep disorder [Unknown]
  - Dry skin [Unknown]
